FAERS Safety Report 12774030 (Version 2)
Quarter: 2016Q4

REPORT INFORMATION
  Report Type: Spontaneous
  Country: DO (occurrence: DO)
  Receive Date: 20160923
  Receipt Date: 20161004
  Transmission Date: 20170207
  Serious: Yes (Hospitalization, Other)
  Sender: FDA-Public Use
  Company Number: DO-ABBVIE-16K-279-1735277-00

PATIENT
  Age: 39 Year
  Sex: Female

DRUGS (6)
  1. ALPLAX [Concomitant]
     Indication: PRODUCT USED FOR UNKNOWN INDICATION
  2. CALCIUM [Concomitant]
     Active Substance: CALCIUM
     Indication: PRODUCT USED FOR UNKNOWN INDICATION
  3. HUMIRA [Suspect]
     Active Substance: ADALIMUMAB
     Route: 058
     Dates: start: 2013, end: 201603
  4. HUMIRA [Suspect]
     Active Substance: ADALIMUMAB
     Route: 058
     Dates: start: 20160808, end: 20160815
  5. FENDRAMIN [Concomitant]
     Indication: PRODUCT USED FOR UNKNOWN INDICATION
  6. HUMIRA [Suspect]
     Active Substance: ADALIMUMAB
     Indication: PSORIATIC ARTHROPATHY
     Route: 058
     Dates: start: 201209, end: 2013

REACTIONS (14)
  - Pyrexia [Recovering/Resolving]
  - Psoriasis [Recovering/Resolving]
  - Psoriasis [Recovered/Resolved]
  - Eczema [Recovering/Resolving]
  - Pain [Recovering/Resolving]
  - Acquired epidermolysis bullosa [Recovering/Resolving]
  - Burning sensation [Recovering/Resolving]
  - Dermatitis exfoliative [Recovering/Resolving]
  - Toxic epidermal necrolysis [Recovering/Resolving]
  - Pustular psoriasis [Recovering/Resolving]
  - Rash pustular [Recovering/Resolving]
  - Pruritus [Recovering/Resolving]
  - Erythema [Recovering/Resolving]
  - Skin lesion [Recovering/Resolving]

NARRATIVE: CASE EVENT DATE: 2013
